FAERS Safety Report 17060449 (Version 3)
Quarter: 2021Q2

REPORT INFORMATION
  Report Type: Spontaneous
  Country: JP (occurrence: JP)
  Receive Date: 20191121
  Receipt Date: 20210408
  Transmission Date: 20210716
  Serious: Yes (Death, Other)
  Sender: FDA-Public Use
  Company Number: JP-ASTRAZENECA-2019SE61995

PATIENT
  Age: 69 Year
  Sex: Male
  Weight: 38 kg

DRUGS (26)
  1. TAGRISSO [Suspect]
     Active Substance: OSIMERTINIB
     Indication: NON-SMALL CELL LUNG CANCER
     Route: 048
     Dates: start: 20190419, end: 20190427
  2. TAGRISSO [Suspect]
     Active Substance: OSIMERTINIB
     Indication: NON-SMALL CELL LUNG CANCER
     Route: 048
     Dates: start: 20190509, end: 20190519
  3. TRAZODONE HYDROCHLORIDE. [Suspect]
     Active Substance: TRAZODONE HYDROCHLORIDE
     Indication: PERSISTENT DEPRESSIVE DISORDER
     Route: 048
     Dates: end: 20190506
  4. SODIUM VALPROATE [Suspect]
     Active Substance: VALPROATE SODIUM
     Indication: PERSISTENT DEPRESSIVE DISORDER
     Route: 048
     Dates: end: 20190506
  5. PYDOXAL [Concomitant]
     Active Substance: PYRIDOXAL
     Indication: PULMONARY TUBERCULOSIS
     Route: 048
     Dates: start: 20180920, end: 20190509
  6. MECOBALAMIN [Concomitant]
     Active Substance: METHYLCOBALAMIN
     Indication: PERSISTENT DEPRESSIVE DISORDER
     Route: 048
     Dates: end: 20190509
  7. ISCOTIN [Concomitant]
     Active Substance: ISONIAZID
     Indication: PULMONARY TUBERCULOSIS
     Route: 048
     Dates: start: 20180920, end: 20190509
  8. BELSOMRA [Suspect]
     Active Substance: SUVOREXANT
     Indication: INSOMNIA
     Route: 048
     Dates: end: 20190506
  9. E KEPPRA [Concomitant]
     Active Substance: LEVETIRACETAM
     Indication: BRAIN NEOPLASM
     Route: 048
     Dates: start: 20190307, end: 20190524
  10. AMLODIPINE [Concomitant]
     Active Substance: AMLODIPINE BESYLATE
     Indication: HYPERTENSION
     Route: 048
     Dates: end: 20190509
  11. FLUNITRAZEPAM [Suspect]
     Active Substance: FLUNITRAZEPAM
     Indication: INSOMNIA
     Route: 048
     Dates: end: 20190506
  12. JANUVIA [Concomitant]
     Active Substance: SITAGLIPTIN PHOSPHATE
     Indication: DIABETES MELLITUS
     Route: 048
     Dates: end: 20190509
  13. TEPRENONE [Concomitant]
     Active Substance: TEPRENONE
     Indication: PERSISTENT DEPRESSIVE DISORDER
     Route: 048
     Dates: end: 20190509
  14. RIFAMPICIN [Concomitant]
     Active Substance: RIFAMPIN
     Indication: PULMONARY TUBERCULOSIS
     Route: 048
     Dates: start: 20180920, end: 20190410
  15. KETOPROFEN. [Concomitant]
     Active Substance: KETOPROFEN
     Indication: BACK PAIN
     Route: 048
     Dates: start: 20190330
  16. TAGRISSO [Suspect]
     Active Substance: OSIMERTINIB
     Indication: NON-SMALL CELL LUNG CANCER
     Route: 048
     Dates: start: 20190510, end: 20190521
  17. CARBAZOCHROME SULFONATE NA [Concomitant]
     Indication: HAEMOPTYSIS
     Route: 042
     Dates: start: 20190504, end: 20190507
  18. TRANEXAMIC ACID. [Concomitant]
     Active Substance: TRANEXAMIC ACID
     Indication: HAEMOPTYSIS
     Route: 042
     Dates: start: 20190504, end: 20190507
  19. TAGRISSO [Suspect]
     Active Substance: OSIMERTINIB
     Indication: NON-SMALL CELL LUNG CANCER
     Route: 048
     Dates: start: 20190326, end: 20190404
  20. ARIPIPRAZOLE. [Suspect]
     Active Substance: ARIPIPRAZOLE
     Indication: PERSISTENT DEPRESSIVE DISORDER
     Route: 048
     Dates: end: 20190509
  21. MAGMITT [Concomitant]
     Active Substance: MAGNESIUM OXIDE
     Indication: CONSTIPATION
     Dosage: 330MG AFTER BREAKFAST, 660MG BEFORE BEDTIME
     Route: 048
     Dates: end: 20190509
  22. LANDSEN [Suspect]
     Active Substance: CLONAZEPAM
     Indication: PERSISTENT DEPRESSIVE DISORDER
     Dosage: 0.5MG UNKNOWN
     Route: 048
     Dates: end: 20190506
  23. LACTEC [Concomitant]
     Active Substance: CALCIUM CHLORIDE ANHYDROUS\POTASSIUM CHLORIDE\SODIUM CHLORIDE\SODIUM LACTATE
     Indication: HYPOPHAGIA
     Route: 042
     Dates: start: 20190426, end: 20190428
  24. AMBROXOL HYDROCHLORIDE [Concomitant]
     Active Substance: AMBROXOL HYDROCHLORIDE
     Indication: SPUTUM RETENTION
     Route: 048
     Dates: start: 20190428, end: 20190501
  25. PHYSIO 35 [Concomitant]
     Active Substance: ELECTROLYTES NOS
     Indication: HYPOPHAGIA
     Route: 042
     Dates: start: 20190429, end: 20190502
  26. TAGRISSO [Suspect]
     Active Substance: OSIMERTINIB
     Indication: NON-SMALL CELL LUNG CANCER
     Route: 048
     Dates: start: 20190326, end: 20190404

REACTIONS (18)
  - Staphylococcal infection [Recovering/Resolving]
  - Malaise [Recovering/Resolving]
  - Psychiatric symptom [Unknown]
  - Metastases to central nervous system [Unknown]
  - Hypophagia [Recovering/Resolving]
  - Haemoptysis [Recovering/Resolving]
  - Bacterial infection [Recovering/Resolving]
  - General physical health deterioration [Unknown]
  - Oxygen saturation abnormal [Not Recovered/Not Resolved]
  - Vomiting [Unknown]
  - Somnolence [Unknown]
  - Urinary incontinence [Not Recovered/Not Resolved]
  - Pyrexia [Unknown]
  - Pneumonia aspiration [Fatal]
  - Lung disorder [Not Recovered/Not Resolved]
  - Asphyxia [Unknown]
  - Sputum retention [Fatal]
  - Sputum increased [Unknown]

NARRATIVE: CASE EVENT DATE: 2019
